FAERS Safety Report 14535449 (Version 1)
Quarter: 2018Q1

REPORT INFORMATION
  Report Type: Spontaneous
  Country: DK (occurrence: DK)
  Receive Date: 20180215
  Receipt Date: 20180215
  Transmission Date: 20180509
  Serious: Yes (Hospitalization)
  Sender: FDA-Public Use
  Company Number: DK-PFIZER INC-2018060455

PATIENT
  Age: 75 Year
  Sex: Male

DRUGS (3)
  1. ZOLEDRONIC ACID [Suspect]
     Active Substance: ZOLEDRONIC ACID
     Indication: PLASMA CELL MYELOMA
     Dosage: 4 MG/100 ML, UNKNOWN
     Route: 042
     Dates: start: 20150720, end: 20170922
  2. UNIKALK FORTE [Concomitant]
     Indication: VITAMIN SUPPLEMENTATION
     Dosage: 2DF,DAILY
     Route: 048
     Dates: start: 20160726
  3. INNOHEP [Concomitant]
     Active Substance: TINZAPARIN SODIUM
     Indication: THROMBOSIS
     Dosage: 0.7 ML, 1X/DAY
     Route: 058
     Dates: end: 20180104

REACTIONS (5)
  - Osteonecrosis of jaw [Recovered/Resolved with Sequelae]
  - Impaired healing [Unknown]
  - Osteosclerosis [Unknown]
  - Bone loss [Unknown]
  - Dental discomfort [Unknown]

NARRATIVE: CASE EVENT DATE: 2017
